FAERS Safety Report 10244656 (Version 1)
Quarter: 2014Q2

REPORT INFORMATION
  Report Type: Report from Study
  Country: CA (occurrence: CA)
  Receive Date: 20140618
  Receipt Date: 20140618
  Transmission Date: 20141212
  Serious: Yes (Other)
  Sender: FDA-Public Use
  Company Number: CA-BRISTOL-MYERS SQUIBB COMPANY-21025259

PATIENT
  Age: 67 Year
  Sex: Female

DRUGS (11)
  1. ORENCIA FOR INJ [Suspect]
     Indication: RHEUMATOID ARTHRITIS
     Dosage: ONG
     Route: 042
     Dates: start: 20120327
  2. SULINDAC [Concomitant]
  3. PREDNISONE [Concomitant]
  4. ADALAT XL [Concomitant]
  5. AVAPRO [Concomitant]
  6. METHOTREXATE [Concomitant]
  7. FOLIC ACID [Concomitant]
  8. CALCIUM [Concomitant]
  9. VITAMIN D [Concomitant]
  10. FOSAMAX [Concomitant]
  11. PANTOLOC [Concomitant]

REACTIONS (1)
  - Cataract [Unknown]
